FAERS Safety Report 20025707 (Version 2)
Quarter: 2021Q4

REPORT INFORMATION
  Report Type: Spontaneous
  Country: US (occurrence: US)
  Receive Date: 20211102
  Receipt Date: 20211223
  Transmission Date: 20220303
  Serious: No
  Sender: FDA-Public Use
  Company Number: US-BRISTOL-MYERS SQUIBB COMPANY-BMS-2021-112121

PATIENT
  Age: 58 Year
  Sex: Female

DRUGS (8)
  1. SPRYCEL [Suspect]
     Active Substance: DASATINIB
     Indication: Chronic myeloid leukaemia
     Dosage: 100 MILLIGRAM, QD
     Route: 048
     Dates: start: 20210929
  2. SPRYCEL [Suspect]
     Active Substance: DASATINIB
     Dosage: 100 MILLIGRAM, BID
     Route: 048
     Dates: start: 20211005, end: 20211213
  3. ALBUTEROL [Concomitant]
     Active Substance: ALBUTEROL
     Indication: Dyspnoea
     Dosage: UNK
  4. CELECOXIB [Concomitant]
     Active Substance: CELECOXIB
     Indication: Arthritis
     Dosage: UNK
     Route: 048
  5. MOMETASONE FUROATE [Concomitant]
     Active Substance: MOMETASONE FUROATE
     Indication: Sinus disorder
     Dosage: UNK
  6. FEXOFENADINE [Concomitant]
     Active Substance: FEXOFENADINE HYDROCHLORIDE
     Indication: Hypersensitivity
     Dosage: UNK
     Route: 048
  7. POTASSIUM [Concomitant]
     Active Substance: POTASSIUM
     Indication: Product used for unknown indication
     Dosage: 20 MILLIGRAM
     Route: 048
  8. TRULANCE [Concomitant]
     Active Substance: PLECANATIDE
     Indication: Irritable bowel syndrome
     Dosage: 3 MILLIGRAM
     Route: 048

REACTIONS (2)
  - Rash [Recovering/Resolving]
  - Off label use [Unknown]

NARRATIVE: CASE EVENT DATE: 20211005
